FAERS Safety Report 21738756 (Version 3)
Quarter: 2025Q2

REPORT INFORMATION
  Report Type: Spontaneous
  Country: US (occurrence: US)
  Receive Date: 20221216
  Receipt Date: 20250509
  Transmission Date: 20250716
  Serious: Yes (Other)
  Sender: AMGEN
  Company Number: US-AMGEN-USASP2022213723

PATIENT
  Age: 63 Year
  Sex: Female

DRUGS (31)
  1. OTEZLA [Suspect]
     Active Substance: APREMILAST
     Indication: Polyarthritis
     Dosage: 30 MILLIGRAM, BID
     Route: 048
     Dates: start: 20170810
  2. OTEZLA [Suspect]
     Active Substance: APREMILAST
     Indication: Ankylosing spondylitis
  3. OTEZLA [Suspect]
     Active Substance: APREMILAST
     Indication: Psoriasis
  4. ACETAZOLAMIDE [Concomitant]
     Active Substance: ACETAZOLAMIDE
  5. ALBUTEROL [Concomitant]
     Active Substance: ALBUTEROL
  6. AMLODIPINE [Concomitant]
     Active Substance: AMLODIPINE BESYLATE
  7. AZITHROMYCIN [Concomitant]
     Active Substance: AZITHROMYCIN
  8. BYSTOLIC [Concomitant]
     Active Substance: NEBIVOLOL HYDROCHLORIDE
  9. ESTRADIOL [Concomitant]
     Active Substance: ESTRADIOL
  10. FLUCONAZOLE [Concomitant]
     Active Substance: FLUCONAZOLE
  11. FOLIC ACID [Concomitant]
     Active Substance: FOLIC ACID
  12. HYDROCODONE BITARTRATE AND ACETAMINOPHEN [Concomitant]
     Active Substance: ACETAMINOPHEN\HYDROCODONE BITARTRATE
  13. HYDROXYCHLOROQUINE SULFATE [Concomitant]
     Active Substance: HYDROXYCHLOROQUINE SULFATE
  14. HYDROXYZINE [Concomitant]
     Active Substance: HYDROXYZINE HYDROCHLORIDE
  15. LEVOCETIRIZINE DIHYDROCHLORIDE [Concomitant]
     Active Substance: LEVOCETIRIZINE DIHYDROCHLORIDE
  16. LEVOTHYROXINE [Concomitant]
     Active Substance: LEVOTHYROXINE
  17. LIOTHYRONINE [Concomitant]
     Active Substance: LIOTHYRONINE
  18. MELOXICAM [Concomitant]
     Active Substance: MELOXICAM
  19. METHOTREXATE [Concomitant]
     Active Substance: METHOTREXATE
  20. MONTELUKAST [Concomitant]
     Active Substance: MONTELUKAST
  21. NYSTATIN [Concomitant]
     Active Substance: NYSTATIN
  22. OXYCODONE AND ACETAMINOPHEN [Concomitant]
     Active Substance: ACETAMINOPHEN\OXYCODONE HYDROCHLORIDE
  23. OXYCONTIN [Concomitant]
     Active Substance: OXYCODONE HYDROCHLORIDE
  24. PANTOPRAZOLE [Concomitant]
     Active Substance: PANTOPRAZOLE
  25. PREDNISONE [Concomitant]
     Active Substance: PREDNISONE
  26. PROMETHAZINE [Concomitant]
     Active Substance: PROMETHAZINE HYDROCHLORIDE
  27. ROSUVASTATIN [Concomitant]
     Active Substance: ROSUVASTATIN
  28. SF 5000 PLUS [Concomitant]
     Active Substance: SODIUM FLUORIDE
  29. SULFASALAZINE DELAYED-RELEASE [Concomitant]
     Active Substance: SULFASALAZINE
  30. TIZANIDINE [Concomitant]
     Active Substance: TIZANIDINE
  31. ZOLPIDEM [Concomitant]
     Active Substance: ZOLPIDEM TARTRATE

REACTIONS (5)
  - Polyarthritis [Not Recovered/Not Resolved]
  - Sensitivity to weather change [Not Recovered/Not Resolved]
  - Product dose omission issue [Unknown]
  - Arthralgia [Unknown]
  - Musculoskeletal stiffness [Unknown]
